FAERS Safety Report 17992101 (Version 1)
Quarter: 2020Q3

REPORT INFORMATION
  Report Type: Spontaneous
  Country: FR (occurrence: FR)
  Receive Date: 20200707
  Receipt Date: 20200707
  Transmission Date: 20201103
  Serious: Yes (Other)
  Sender: FDA-Public Use
  Company Number: NVSC2020FR188118

PATIENT
  Age: 26 Year
  Sex: Female

DRUGS (1)
  1. PREDNISOLONE. [Suspect]
     Active Substance: PREDNISOLONE
     Indication: CYST
     Dosage: UNK
     Route: 065

REACTIONS (7)
  - Vision blurred [Unknown]
  - Malaise [Unknown]
  - Nephrolithiasis [Unknown]
  - Renal pain [Unknown]
  - Feeling of body temperature change [Unknown]
  - Hot flush [Unknown]
  - Arthralgia [Unknown]
